FAERS Safety Report 7545273-1 (Version None)
Quarter: 2011Q2

REPORT INFORMATION
  Report Type: 
  Country: None (occurrence: None)
  Receive Date: 20110613
  Receipt Date: 20110613
  Transmission Date: 20111010
  Serious: Yes (Other)
  Sender: FDA-Public Use
  Company Number: None

PATIENT
  Sex: Female
  Weight: 56.246 kg

DRUGS (1)
  1. ATENOLOL [Suspect]

REACTIONS (4)
  - ANXIETY [None]
  - PALPITATIONS [None]
  - DYSPNOEA [None]
  - CHEST PAIN [None]
